FAERS Safety Report 7049320-5 (Version None)
Quarter: 2010Q4

REPORT INFORMATION
  Report Type: 
  Country: None (occurrence: None)
  Receive Date: 20101018
  Receipt Date: 20091204
  Transmission Date: 20110411
  Serious: No
  Sender: FDA-Public Use
  Company Number: A0833633A

PATIENT
  Age: 59 Year
  Sex: Female

DRUGS (4)
  1. CEFUROXIME AXETIL [Suspect]
     Indication: INFECTION
     Dosage: 2TAB TWICE PER DAY
     Route: 048
     Dates: start: 20091202
  2. SYNTHROID [Concomitant]
  3. GLIPIZIDE [Concomitant]
  4. FLORASTOR [Concomitant]

REACTIONS (6)
  - BURNING SENSATION [None]
  - ERYTHEMA [None]
  - NONSPECIFIC REACTION [None]
  - RASH [None]
  - ROSACEA [None]
  - SWELLING FACE [None]
